FAERS Safety Report 8650659 (Version 2)
Quarter: 2013Q2

REPORT INFORMATION
  Report Type: Spontaneous
  Country: None (occurrence: BE)
  Receive Date: 20120628
  Receipt Date: 20130425
  Transmission Date: 20140414
  Serious: Yes (Life-Threatening)
  Sender: FDA-Public Use
  Company Number: BE-BAXTER-2011BH029901

PATIENT
  Age: 45 Year
  Sex: Male

DRUGS (9)
  1. TISSUCOL KIT [Suspect]
     Indication: PITUITARY TUMOUR REMOVAL
     Route: 065
     Dates: start: 20110809, end: 20110809
  2. TISSUCOL KIT, POUDRES ET SOLVANTS POUR COLLE [Suspect]
     Indication: PITUITARY TUMOUR REMOVAL
  3. AUGMENTINE [Concomitant]
     Indication: GENERAL ANAESTHESIA
     Route: 065
     Dates: start: 20110809
  4. TARADYL [Concomitant]
     Indication: GENERAL ANAESTHESIA
     Route: 065
     Dates: start: 20110809
  5. HYDROCORTISONE [Concomitant]
     Indication: GENERAL ANAESTHESIA
     Route: 065
     Dates: start: 20110809
  6. DIPRIVAN [Concomitant]
     Indication: GENERAL ANAESTHESIA
     Route: 065
     Dates: start: 20110809
  7. ULTIVA [Concomitant]
     Indication: GENERAL ANAESTHESIA
     Route: 041
     Dates: start: 20110809
  8. NIMBEX [Concomitant]
     Indication: GENERAL ANAESTHESIA
     Route: 065
     Dates: start: 20110809
  9. SPONGOSTAN [Concomitant]
     Indication: PRODUCT USED FOR UNKNOWN INDICATION
     Route: 065
     Dates: start: 20110809

REACTIONS (2)
  - Anaphylactic reaction [Recovered/Resolved]
  - Shock [Recovered/Resolved]
